FAERS Safety Report 7555135-1 (Version None)
Quarter: 2011Q2

REPORT INFORMATION
  Report Type: 
  Country: None (occurrence: None)
  Receive Date: 20110617
  Receipt Date: 20110524
  Transmission Date: 20111010
  Serious: Yes (Hospitalization)
  Sender: FDA-Public Use
  Company Number: US-UCBSA-033744

PATIENT
  Sex: Female

DRUGS (9)
  1. KEPPRA [Concomitant]
     Indication: EPILEPSY
     Dates: start: 20100413, end: 20110217
  2. KEPPRA [Concomitant]
     Dates: start: 20110509
  3. KEPPRA [Concomitant]
     Dates: start: 20110218, end: 20110302
  4. KEPPRA [Concomitant]
     Dates: start: 20110317, end: 20110101
  5. TRAZODONE HCL [Concomitant]
     Indication: INSOMNIA
     Dates: start: 20100601
  6. LACOSAMIDE [Suspect]
     Indication: EPILEPSY
     Route: 048
     Dates: start: 20110127, end: 20110506
  7. KEPPRA [Concomitant]
     Dates: start: 20110303, end: 20110316
  8. NAPROXEN [Concomitant]
     Indication: NEUROPATHY PERIPHERAL
     Dates: start: 20100701
  9. PAXIL [Concomitant]
     Indication: DEPRESSION
     Dates: start: 20101001

REACTIONS (1)
  - HYPONATRAEMIA [None]
